FAERS Safety Report 7101970-3 (Version None)
Quarter: 2010Q4

REPORT INFORMATION
  Report Type: 
  Country: None (occurrence: None)
  Receive Date: 20101115
  Receipt Date: 20101104
  Transmission Date: 20110411
  Serious: Yes (Hospitalization, Disabling)
  Sender: FDA-Public Use
  Company Number: US-CELGENEUS-163-21880-10111333

PATIENT
  Sex: Male

DRUGS (6)
  1. REVLIMID [Suspect]
     Indication: MULTIPLE MYELOMA
     Route: 048
     Dates: start: 20100616
  2. DEXAMETHASONE [Concomitant]
     Route: 065
     Dates: start: 20100616
  3. LORTAB [Concomitant]
     Indication: PAIN
     Route: 065
     Dates: start: 20100618
  4. ARIXTRA [Concomitant]
     Route: 065
     Dates: start: 20090901
  5. DIOVAN [Concomitant]
     Indication: HYPERTENSION
     Route: 065
  6. MIRALAX [Concomitant]
     Indication: CONSTIPATION
     Route: 065

REACTIONS (2)
  - ABASIA [None]
  - ASTHENIA [None]
